FAERS Safety Report 9634086 (Version 1)
Quarter: 2013Q4

REPORT INFORMATION
  Report Type: Spontaneous
  Country: FR (occurrence: FR)
  Receive Date: 20131021
  Receipt Date: 20131021
  Transmission Date: 20140711
  Serious: Yes (Other)
  Sender: FDA-Public Use
  Company Number: FR-BAYER-2013-126191

PATIENT
  Age: 33 Year
  Sex: Male

DRUGS (6)
  1. IZILOX [Suspect]
     Indication: PULMONARY TUBERCULOSIS
     Dosage: 400 MG, QD
     Route: 048
     Dates: start: 20120911
  2. ZYVOXID [Suspect]
     Indication: PULMONARY TUBERCULOSIS
     Dosage: 600 MG, UNK
     Route: 048
     Dates: start: 20120911, end: 20130724
  3. AMIKACINE [Suspect]
     Indication: PULMONARY TUBERCULOSIS
     Dosage: 550 MG, TIW
     Route: 042
     Dates: start: 20130531
  4. PASER [Suspect]
     Indication: PULMONARY TUBERCULOSIS
     Dosage: 16 G, QD
     Route: 048
     Dates: start: 20120911
  5. LYRICA [Concomitant]
     Indication: NEUROPATHY PERIPHERAL
     Dosage: 150 MG, QD
     Route: 048
     Dates: start: 20130628, end: 20130724
  6. LAMPRENE [Concomitant]

REACTIONS (1)
  - Neuropathy peripheral [Recovering/Resolving]
